FAERS Safety Report 12331076 (Version 3)
Quarter: 2016Q2

REPORT INFORMATION
  Report Type: Spontaneous
  Country: PT (occurrence: PT)
  Receive Date: 20160504
  Receipt Date: 20160512
  Transmission Date: 20160815
  Serious: Yes (Death, Other)
  Sender: FDA-Public Use
  Company Number: PT-ROCHE-1748114

PATIENT
  Sex: Female
  Weight: 59 kg

DRUGS (12)
  1. HERCEPTIN [Suspect]
     Active Substance: TRASTUZUMAB
     Indication: HER-2 POSITIVE BREAST CANCER
     Dosage: LOADING DOSE:450MG; FOLLOWING DOSES 350MG,3/3WEEKS
     Route: 042
     Dates: start: 20090812, end: 20100908
  2. PACLITAXEL. [Suspect]
     Active Substance: PACLITAXEL
     Indication: HER-2 POSITIVE BREAST CANCER
     Route: 042
     Dates: start: 20120125, end: 20120418
  3. LAPATINIB [Suspect]
     Active Substance: LAPATINIB
     Indication: HER-2 POSITIVE BREAST CANCER
     Route: 048
     Dates: start: 20120825, end: 20130813
  4. ANASTROZOLE. [Concomitant]
     Active Substance: ANASTROZOLE
     Route: 065
     Dates: start: 20110630, end: 20120110
  5. HERCEPTIN [Suspect]
     Active Substance: TRASTUZUMAB
     Dosage: DID NOT MADE LOADING DOSE
     Route: 042
     Dates: start: 20140430, end: 20141119
  6. LUCRIN [Concomitant]
     Active Substance: LEUPROLIDE ACETATE
     Route: 065
     Dates: start: 20110630, end: 20120110
  7. HERCEPTIN [Suspect]
     Active Substance: TRASTUZUMAB
     Dosage: LOADING DOSE:556MG; FOLLOWING DOSES 417MG,3/3WEEKS
     Route: 042
     Dates: start: 20120125, end: 20120418
  8. XELODA [Suspect]
     Active Substance: CAPECITABINE
     Indication: HER-2 POSITIVE BREAST CANCER
     Dosage: 1650MG AFTER BREAKFAST+1650MG AFTER DINNER
     Route: 048
     Dates: start: 20120825, end: 20130924
  9. ABRAXANE [Suspect]
     Active Substance: PACLITAXEL
     Indication: HER-2 POSITIVE BREAST CANCER
     Route: 065
     Dates: start: 20140430, end: 20140910
  10. KADCYLA [Suspect]
     Active Substance: ADO-TRASTUZUMAB EMTANSINE
     Indication: BREAST CANCER METASTATIC
     Dosage: FORM STRENGTH: 100 MG AND 160 MG
     Route: 042
     Dates: start: 20141212, end: 20141212
  11. HERCEPTIN [Suspect]
     Active Substance: TRASTUZUMAB
     Dosage: LOADING DOSE:504MG; FOLLOWING DOSES 378MG,3/3WEEKS
     Route: 042
     Dates: start: 20131015
  12. VINORELBINE [Suspect]
     Active Substance: VINORELBINE\VINORELBINE TARTRATE
     Indication: HER-2 POSITIVE BREAST CANCER
     Route: 065
     Dates: start: 20131015

REACTIONS (6)
  - Metastasis [Not Recovered/Not Resolved]
  - Death [Fatal]
  - Metastases to bone [Not Recovered/Not Resolved]
  - Metastases to peritoneum [Not Recovered/Not Resolved]
  - Metastases to lung [Not Recovered/Not Resolved]
  - General physical health deterioration [Not Recovered/Not Resolved]

NARRATIVE: CASE EVENT DATE: 20141205
